FAERS Safety Report 19860031 (Version 1)
Quarter: 2021Q3

REPORT INFORMATION
  Report Type: Spontaneous
  Country: US (occurrence: US)
  Receive Date: 20210921
  Receipt Date: 20210921
  Transmission Date: 20211014
  Serious: No
  Sender: FDA-Public Use
  Company Number: US-CELLTRION INC.-2020US026196

PATIENT

DRUGS (2)
  1. HUMIRA [Suspect]
     Active Substance: ADALIMUMAB
     Indication: CROHN^S DISEASE
     Dosage: 40 MG INJECTION EVERY TWO WEEKS
  2. INFLECTRA [Suspect]
     Active Substance: INFLIXIMAB-DYYB
     Indication: CROHN^S DISEASE
     Dosage: UNKNOWN DOSAGE OF INFUSION EVERY TWO MONTHS
     Dates: start: 2019

REACTIONS (2)
  - Product temperature excursion issue [Unknown]
  - Intentional dose omission [Not Recovered/Not Resolved]
